FAERS Safety Report 19209319 (Version 1)
Quarter: 2021Q2

REPORT INFORMATION
  Report Type: Spontaneous
  Country: US (occurrence: US)
  Receive Date: 20210503
  Receipt Date: 20210503
  Transmission Date: 20210717
  Serious: Yes (Disabling, Other)
  Sender: FDA-Public Use
  Company Number: US-PFIZER INC-2021361706

PATIENT
  Age: 65 Year
  Sex: Female
  Weight: 57.61 kg

DRUGS (10)
  1. TOZINAMERAN. [Suspect]
     Active Substance: TOZINAMERAN
     Indication: COVID-19 IMMUNISATION
     Dosage: SINGLE DOSE
     Dates: start: 20210307, end: 20210307
  2. MEDROL [Suspect]
     Active Substance: METHYLPREDNISOLONE
     Dosage: 8 MG
     Dates: start: 20210311, end: 20210313
  3. BENADRYL [Concomitant]
     Active Substance: DIPHENHYDRAMINE HYDROCHLORIDE
     Dosage: UNK
  4. TYLENOL [Concomitant]
     Active Substance: ACETAMINOPHEN
     Dosage: 325 MG
  5. MEDROL [Suspect]
     Active Substance: METHYLPREDNISOLONE
     Dosage: 6 MG
     Dates: start: 20210314
  6. SYNTHROID [Concomitant]
     Active Substance: LEVOTHYROXINE SODIUM
     Indication: THYROID DISORDER
     Dosage: 50 UG, 1X/DAY
     Route: 048
  7. MEDROL [Suspect]
     Active Substance: METHYLPREDNISOLONE
     Dosage: 2 MG
  8. MEDROL [Suspect]
     Active Substance: METHYLPREDNISOLONE
     Dosage: 6 MG
     Dates: end: 20210310
  9. MEDROL [Suspect]
     Active Substance: METHYLPREDNISOLONE
     Indication: SYSTEMIC LUPUS ERYTHEMATOSUS
     Dosage: SHORT?TERM INCREASE OF THE MEDROL DOSE
  10. ALBUTEROL HFA [Concomitant]
     Active Substance: ALBUTEROL SULFATE
     Indication: ASTHMA
     Dosage: 180 UG, AS NEEDED

REACTIONS (21)
  - Arthralgia [Unknown]
  - Dysphonia [Unknown]
  - Rash [Unknown]
  - Paraesthesia oral [Unknown]
  - Pharyngeal disorder [Unknown]
  - Systemic inflammatory response syndrome [Unknown]
  - Renal failure [Unknown]
  - Glossitis [Unknown]
  - Erythema [Recovered/Resolved]
  - Nephritis [Unknown]
  - Cough [Unknown]
  - Palpitations [Unknown]
  - Kawasaki^s disease [Unknown]
  - Paraesthesia [Unknown]
  - Acute stress disorder [Unknown]
  - Dyspnoea [Unknown]
  - Cardiac flutter [Unknown]
  - Bone pain [Recovered/Resolved]
  - Tongue oedema [Unknown]
  - Oral mucosal eruption [Unknown]
  - Fatigue [Unknown]

NARRATIVE: CASE EVENT DATE: 202103
